FAERS Safety Report 17773713 (Version 1)
Quarter: 2020Q2

REPORT INFORMATION
  Report Type: Report from Study
  Country: None (occurrence: US)
  Receive Date: 20200512
  Receipt Date: 20200512
  Transmission Date: 20200714
  Serious: Yes (Hospitalization, Other)
  Sender: FDA-Public Use
  Company Number: US-ABBVIE-20K-163-3316134-00

PATIENT
  Age: 72 Year
  Sex: Male
  Weight: 62.2 kg

DRUGS (3)
  1. DUOPA [Suspect]
     Active Substance: CARBIDOPA\LEVODOPA
     Indication: PARKINSON^S DISEASE
     Dosage: DOSAGE DECREASED
     Route: 050
     Dates: start: 20160725
  2. ABX (AMBROXOL HYDROCHLORIDE) [Suspect]
     Active Substance: AMBROXOL HYDROCHLORIDE
     Indication: PRODUCT USED FOR UNKNOWN INDICATION
     Route: 065
  3. METHIMAZOLE. [Concomitant]
     Active Substance: METHIMAZOLE
     Indication: THYROID DISORDER
     Dosage: 1/2 TAB
     Route: 048

REACTIONS (6)
  - Cataract [Recovered/Resolved]
  - Stoma site discharge [Recovering/Resolving]
  - Stoma site pain [Recovering/Resolving]
  - Inguinal hernia [Recovered/Resolved]
  - Abdominal pain upper [Unknown]
  - Stoma site erythema [Recovering/Resolving]

NARRATIVE: CASE EVENT DATE: 20191226
